FAERS Safety Report 8190487-3 (Version None)
Quarter: 2012Q1

REPORT INFORMATION
  Report Type: 
  Country: None (occurrence: None)
  Receive Date: 20120307
  Receipt Date: 20120228
  Transmission Date: 20120608
  Serious: Yes (Hospitalization)
  Sender: FDA-Public Use
  Company Number: PHHY2012AR011177

PATIENT
  Age: 79 Year
  Sex: Male

DRUGS (8)
  1. HYDROCHLOROTHIAZIDE [Concomitant]
     Dosage: 25 MG/DAY
  2. GLYBURIDE [Concomitant]
     Dosage: 10 MG/DAY
  3. ACETYLSALICYLIC ACID SRT [Concomitant]
     Dosage: 100 MG/DAY
  4. LEVOFLOXACIN [Suspect]
     Indication: PNEUMONIA
     Dosage: 500 MG, PER DAY
  5. SIMVASTATIN [Concomitant]
     Dosage: 20 MG/DAY
  6. LOSARTAN POTASSIUM [Concomitant]
     Dosage: 100 MG/DAY
  7. AMLODIPINE [Concomitant]
     Dosage: 10 MG/DAY
  8. METFORMIN [Concomitant]
     Dosage: 1700 MG/DAY

REACTIONS (7)
  - HALLUCINATION, VISUAL [None]
  - CONFUSIONAL STATE [None]
  - TOXICITY TO VARIOUS AGENTS [None]
  - CENTRAL NERVOUS SYSTEM LESION [None]
  - CEREBRAL ATROPHY [None]
  - PSYCHOMOTOR HYPERACTIVITY [None]
  - DISORIENTATION [None]
